FAERS Safety Report 11270008 (Version 1)
Quarter: 2015Q3

REPORT INFORMATION
  Report Type: Spontaneous
  Country: FR (occurrence: FR)
  Receive Date: 20150714
  Receipt Date: 20150714
  Transmission Date: 20151125
  Serious: Yes (Other)
  Sender: FDA-Public Use
  Company Number: FR-009507513-1507FRA005185

PATIENT
  Age: 53 Year
  Sex: Male

DRUGS (7)
  1. EMEND [Suspect]
     Active Substance: APREPITANT
     Dosage: UNK
     Route: 048
  2. ZOPHREN (ONDANSETRON) [Concomitant]
     Active Substance: ONDANSETRON
     Dosage: UNK
  3. LEVACT [Suspect]
     Active Substance: BENDAMUSTINE HYDROCHLORIDE
     Dosage: 200 MG/M2, DAILY
     Route: 042
     Dates: start: 20150122, end: 20150123
  4. ETOPOSIDE TEVA [Suspect]
     Active Substance: ETOPOSIDE
     Dosage: 200 MG/M2, DAILY
     Route: 042
     Dates: start: 20150124, end: 20150127
  5. METHYLPREDNISOLONE. [Concomitant]
     Active Substance: METHYLPREDNISOLONE
     Dosage: UNK
     Route: 042
  6. ALKERAN [Suspect]
     Active Substance: MELPHALAN
     Dosage: 140 MG/M2, ONCE
     Route: 042
     Dates: start: 20150128, end: 20150128
  7. CYTARABINE. [Suspect]
     Active Substance: CYTARABINE
     Dosage: 200 MG/M2, TWICE
     Route: 042
     Dates: start: 20150124, end: 20150127

REACTIONS (1)
  - Aplasia [Recovered/Resolved]

NARRATIVE: CASE EVENT DATE: 20150131
